FAERS Safety Report 21328627 (Version 1)
Quarter: 2022Q3

REPORT INFORMATION
  Report Type: Spontaneous
  Country: US (occurrence: US)
  Receive Date: 20220913
  Receipt Date: 20220913
  Transmission Date: 20221026
  Serious: No
  Sender: FDA-Public Use
  Company Number: US-009507513-2208USA008861

PATIENT
  Sex: Female

DRUGS (1)
  1. KEYTRUDA [Suspect]
     Active Substance: PEMBROLIZUMAB
     Indication: Renal cancer stage IV
     Dosage: UNK, Q3W
     Route: 042
     Dates: start: 20220818

REACTIONS (10)
  - Bite [Unknown]
  - Rhinorrhoea [Unknown]
  - Nasal congestion [Unknown]
  - Sinus headache [Unknown]
  - Dysphonia [Unknown]
  - Cough [Unknown]
  - Primary cough headache [Unknown]
  - Poor quality sleep [Unknown]
  - Emotional distress [Unknown]
  - Malaise [Unknown]

NARRATIVE: CASE EVENT DATE: 20220801
